FAERS Safety Report 7660495-7 (Version None)
Quarter: 2011Q3

REPORT INFORMATION
  Report Type: 
  Country: None (occurrence: None)
  Receive Date: 20110805
  Receipt Date: 20110729
  Transmission Date: 20111222
  Serious: Yes (Hospitalization, Other)
  Sender: FDA-Public Use
  Company Number: US-ASTRAZENECA-2010SE20147

PATIENT
  Age: 50 Year
  Sex: Female

DRUGS (1)
  1. NEXIUM [Suspect]
     Route: 048

REACTIONS (15)
  - ACCIDENT AT WORK [None]
  - WEIGHT DECREASED [None]
  - ILL-DEFINED DISORDER [None]
  - THERAPEUTIC RESPONSE UNEXPECTED [None]
  - BACK DISORDER [None]
  - APHAGIA [None]
  - ABDOMINAL DISCOMFORT [None]
  - ROAD TRAFFIC ACCIDENT [None]
  - VOMITING [None]
  - DRUG DOSE OMISSION [None]
  - GASTRIC CANCER [None]
  - PAIN [None]
  - ABDOMINAL PAIN UPPER [None]
  - CERVICAL VERTEBRAL FRACTURE [None]
  - CYST [None]
